FAERS Safety Report 24657705 (Version 1)
Quarter: 2024Q4

REPORT INFORMATION
  Report Type: Spontaneous
  Country: NO (occurrence: NO)
  Receive Date: 20241125
  Receipt Date: 20241125
  Transmission Date: 20250115
  Serious: Yes (Death, Hospitalization, Other)
  Sender: BRISTOL-MYERS SQUIBB COMPANY
  Company Number: None

PATIENT
  Age: 87 Year
  Sex: Male

DRUGS (3)
  1. ELIQUIS [Suspect]
     Active Substance: APIXABAN
     Indication: Deep vein thrombosis
     Dosage: DOSAGE TO BE REDUCED AFTER 1 WEEK.
     Route: 048
     Dates: start: 20240212, end: 20240212
  2. METOPROLOL SUCCINATE [Concomitant]
     Active Substance: METOPROLOL SUCCINATE
     Indication: Product used for unknown indication
  3. IMOVANE [Concomitant]
     Active Substance: ZOPICLONE
     Indication: Product used for unknown indication

REACTIONS (6)
  - Gastrointestinal haemorrhage [Fatal]
  - Dyspnoea [Fatal]
  - Haemoptysis [Fatal]
  - Hypercapnia [Fatal]
  - Hiatus hernia [Fatal]
  - Aspiration [Fatal]

NARRATIVE: CASE EVENT DATE: 20240212
